FAERS Safety Report 10182747 (Version 1)
Quarter: 2014Q2

REPORT INFORMATION
  Report Type: Spontaneous
  Country: US (occurrence: None)
  Receive Date: 20140519
  Receipt Date: 20140519
  Transmission Date: 20141212
  Serious: No
  Sender: FDA-Public Use
  Company Number: None

PATIENT
  Age: 30 Year
  Sex: Female
  Weight: 72.58 kg

DRUGS (1)
  1. MOXIFLOXACIN [Suspect]
     Indication: SINUSITIS
     Route: 048
     Dates: start: 20140512, end: 20140513

REACTIONS (3)
  - Tendonitis [None]
  - Malaise [None]
  - Pain [None]
